FAERS Safety Report 7713823-8 (Version None)
Quarter: 2011Q3

REPORT INFORMATION
  Report Type: 
  Country: None (occurrence: None)
  Receive Date: 20110826
  Receipt Date: 20110822
  Transmission Date: 20111222
  Serious: Yes (Other)
  Sender: FDA-Public Use
  Company Number: US-PFIZER INC-2011195371

PATIENT
  Age: 64 Year
  Sex: Female
  Weight: 93.878 kg

DRUGS (8)
  1. METFORMIN HCL [Suspect]
     Dosage: 500 MG, 1X/DAY
     Route: 048
  2. POTASSIUM CHLORIDE [Suspect]
     Dosage: 10 MG, 1X/DAY
     Route: 048
     Dates: start: 20110422
  3. AMLODIPINE BESYLATE [Suspect]
     Indication: BLOOD PRESSURE
     Dosage: 10 MG, UNK
  4. OLMESARTAN MEDOXOMIL [Suspect]
     Dosage: 40 MG, UNK
     Route: 048
  5. LIPITOR [Suspect]
     Dosage: 20 MG, UNK
     Route: 048
     Dates: start: 20110301, end: 20110527
  6. ATENOLOL [Suspect]
     Indication: BLOOD PRESSURE
     Dosage: 50 MG, 2X/DAY
     Route: 048
  7. POTASSIUM CHLORIDE [Suspect]
     Dosage: 10 MG, 2X/DAY
     Dates: end: 20110421
  8. TRICOR [Suspect]
     Dosage: 145 MG, 1X/DAY
     Route: 048

REACTIONS (3)
  - OEDEMA PERIPHERAL [None]
  - MYALGIA [None]
  - DRUG INTERACTION [None]
